FAERS Safety Report 20545983 (Version 1)
Quarter: 2022Q1

REPORT INFORMATION
  Report Type: Report from Study
  Country: US (occurrence: US)
  Receive Date: 20220303
  Receipt Date: 20220303
  Transmission Date: 20220423
  Serious: Yes (Hospitalization, Other)
  Sender: FDA-Public Use
  Company Number: US-EXELIXIS-CABO-22049469

PATIENT
  Sex: Male

DRUGS (1)
  1. CABOMETYX [Suspect]
     Active Substance: CABOZANTINIB S-MALATE
     Indication: Gastric cancer
     Dosage: 40 MG, QD
     Route: 048
     Dates: start: 202112, end: 202201

REACTIONS (8)
  - Adverse drug reaction [Unknown]
  - Blood glucose decreased [Unknown]
  - Loss of consciousness [Unknown]
  - Somnambulism [Unknown]
  - Ageusia [Unknown]
  - Dehydration [Unknown]
  - Decreased appetite [Unknown]
  - Off label use [Unknown]
